FAERS Safety Report 5853805-4 (Version None)
Quarter: 2008Q3

REPORT INFORMATION
  Report Type: 
  Country: None (occurrence: None)
  Receive Date: 20080822
  Receipt Date: 20080324
  Transmission Date: 20090109
  Serious: No
  Sender: FDA-Public Use
  Company Number: US-BAYER-200817999NA

PATIENT
  Age: 49 Year
  Sex: Female

DRUGS (1)
  1. CLIMARA PRO [Suspect]
     Indication: MENOPAUSAL SYMPTOMS
     Route: 062

REACTIONS (3)
  - APPLICATION SITE BURN [None]
  - APPLICATION SITE PRURITUS [None]
  - APPLICATION SITE URTICARIA [None]
